FAERS Safety Report 15150208 (Version 1)
Quarter: 2018Q3

REPORT INFORMATION
  Report Type: Spontaneous
  Country: NL (occurrence: NL)
  Receive Date: 20180716
  Receipt Date: 20180716
  Transmission Date: 20181010
  Serious: Yes (Hospitalization)
  Sender: FDA-Public Use
  Company Number: NL-US WORLDMEDS, LLC-STA_00017011

PATIENT
  Sex: Female

DRUGS (10)
  1. APOMORPHINE HYDROCHLORIDE [Suspect]
     Active Substance: APOMORPHINE HYDROCHLORIDE
     Indication: PARKINSON^S DISEASE
     Dosage: FLOW 1.4 ML/HR (3.5 MG/HR)DURING 14.5 HRS., BOLUS 0.99 ML, 2 TIMES IN A ROW 0.99 ML, 2 TIMES IN A RO
     Route: 058
     Dates: start: 20090727
  2. AMANTADINE 100 MG [Concomitant]
     Indication: PRODUCT USED FOR UNKNOWN INDICATION
  3. DOMPERIDONE 10 MG [Concomitant]
     Active Substance: DOMPERIDONE
     Indication: PRODUCT USED FOR UNKNOWN INDICATION
  4. LEVODOPA/CARBIDOPA 50/12.5 MG [Concomitant]
     Indication: PRODUCT USED FOR UNKNOWN INDICATION
  5. ESOMEPRAZOL 40 MG [Concomitant]
     Indication: PRODUCT USED FOR UNKNOWN INDICATION
  6. HEPARINOIDEN OINTMENT 3MG [Concomitant]
     Indication: PRODUCT USED FOR UNKNOWN INDICATION
  7. LEVODOPA/CARBIDOPA 100/25 MG [Concomitant]
     Indication: PRODUCT USED FOR UNKNOWN INDICATION
  8. VENLAFAXINE 37.5 MG [Concomitant]
     Active Substance: VENLAFAXINE HYDROCHLORIDE
     Indication: PRODUCT USED FOR UNKNOWN INDICATION
  9. LEVODOPA/CARBIDOPA 200/50 MG [Concomitant]
     Indication: PRODUCT USED FOR UNKNOWN INDICATION
  10. ESCITALOPRAM DROPS 20 MG [Concomitant]
     Indication: PRODUCT USED FOR UNKNOWN INDICATION

REACTIONS (2)
  - Loss of control of legs [Unknown]
  - Hernia [Unknown]

NARRATIVE: CASE EVENT DATE: 2014
